FAERS Safety Report 8774212 (Version 2)
Quarter: 2013Q4

REPORT INFORMATION
  Report Type: Spontaneous
  Country: US (occurrence: US)
  Receive Date: 20120907
  Receipt Date: 20131105
  Transmission Date: 20140711
  Serious: Yes (Disabling, Other)
  Sender: FDA-Public Use
  Company Number: US-009507513-2012SP004716

PATIENT
  Sex: Male

DRUGS (3)
  1. PEG-INTRON [Suspect]
     Indication: HEPATITIS C
     Dosage: UNK UNK, UNKNOWN
     Route: 065
     Dates: start: 20110920, end: 20120403
  2. REBETOL [Suspect]
     Indication: HEPATITIS C
     Dosage: UNK UNK, UNKNOWN
     Route: 065
     Dates: start: 20110920, end: 20120403
  3. VICTRELIS [Suspect]
     Indication: HEPATITIS C
     Dosage: UNK UNK, UNKNOWN
     Route: 065
     Dates: start: 20111018, end: 20120403

REACTIONS (11)
  - Fatigue [Unknown]
  - Hypoacusis [Unknown]
  - Hair texture abnormal [Unknown]
  - Weight increased [Unknown]
  - Hair colour changes [Unknown]
  - Alopecia [Unknown]
  - Erectile dysfunction [Unknown]
  - Cough [Unknown]
  - Anaemia [Unknown]
  - Pruritus [Unknown]
  - Rash [Unknown]
